FAERS Safety Report 6070784-8 (Version None)
Quarter: 2009Q1

REPORT INFORMATION
  Report Type: 
  Country: None (occurrence: None)
  Receive Date: 20090209
  Receipt Date: 20080908
  Transmission Date: 20090719
  Serious: No
  Sender: FDA-Public Use
  Company Number: A0681855A

PATIENT
  Age: 33 Year
  Sex: Female
  Weight: 61.4 kg

DRUGS (4)
  1. PAXIL [Suspect]
     Indication: POST-TRAUMATIC STRESS DISORDER
     Dosage: 20MG PER DAY
     Route: 048
     Dates: start: 20060101
  2. SEROQUEL [Concomitant]
     Indication: SLEEP DISORDER
  3. TOPAMAX [Concomitant]
     Indication: NIGHTMARE
  4. ALPRAZOLAM [Concomitant]

REACTIONS (2)
  - DRUG EXPOSURE DURING PREGNANCY [None]
  - LIVE BIRTH [None]
